FAERS Safety Report 18329777 (Version 1)
Quarter: 2020Q3

REPORT INFORMATION
  Report Type: Spontaneous
  Country: US (occurrence: US)
  Receive Date: 20200930
  Receipt Date: 20200930
  Transmission Date: 20201103
  Serious: Yes (Life-Threatening, Disabling)
  Sender: FDA-Public Use
  Company Number: None

PATIENT
  Age: 43 Year
  Sex: Female
  Weight: 65.25 kg

DRUGS (2)
  1. FAMCYCLOVIR [Concomitant]
     Active Substance: FAMCICLOVIR
  2. PERRIGO ALBUTEROL SULFATE INHALATION AEROSOL [Suspect]
     Active Substance: ALBUTEROL SULFATE
     Indication: ASTHMA
     Dosage: ?          QUANTITY:1 PUFF(S);?
     Route: 055

REACTIONS (3)
  - Dyspnoea [None]
  - Device failure [None]
  - Device delivery system issue [None]

NARRATIVE: CASE EVENT DATE: 20200928
